FAERS Safety Report 19485671 (Version 1)
Quarter: 2021Q3

REPORT INFORMATION
  Report Type: Spontaneous
  Country: US (occurrence: US)
  Receive Date: 20210701
  Receipt Date: 20210701
  Transmission Date: 20211014
  Serious: Yes (Hospitalization)
  Sender: FDA-Public Use
  Company Number: None

PATIENT
  Age: 53 Year
  Sex: Male

DRUGS (2)
  1. MYXREDLIN [Suspect]
     Active Substance: INSULIN HUMAN
  2. EPTIFIBATIDE. [Suspect]
     Active Substance: EPTIFIBATIDE

REACTIONS (3)
  - Product packaging confusion [None]
  - Product selection error [None]
  - Wrong product administered [None]

NARRATIVE: CASE EVENT DATE: 20210422
